FAERS Safety Report 11059166 (Version 3)
Quarter: 2015Q2

REPORT INFORMATION
  Report Type: Report from Study
  Country: BR (occurrence: BR)
  Receive Date: 20150423
  Receipt Date: 20150602
  Transmission Date: 20150821
  Serious: Yes (Hospitalization, Other)
  Sender: FDA-Public Use
  Company Number: PHHY2015BR034260

PATIENT
  Age: 28 Year
  Sex: Female
  Weight: 67 kg

DRUGS (1)
  1. RITALIN LA [Suspect]
     Active Substance: METHYLPHENIDATE HYDROCHLORIDE
     Indication: ATTENTION DEFICIT/HYPERACTIVITY DISORDER
     Dosage: 1 DF, QD
     Route: 048
     Dates: start: 20140428

REACTIONS (11)
  - Insomnia [Recovering/Resolving]
  - Malaise [Recovering/Resolving]
  - Vomiting [Recovered/Resolved]
  - Abdominal pain [Recovered/Resolved]
  - Depression [Not Recovered/Not Resolved]
  - Dizziness [Not Recovered/Not Resolved]
  - Pyrexia [Recovered/Resolved]
  - Diarrhoea [Recovered/Resolved]
  - Headache [Recovering/Resolving]
  - Vision blurred [Not Recovered/Not Resolved]
  - Panic disorder [Recovering/Resolving]

NARRATIVE: CASE EVENT DATE: 20150318
